FAERS Safety Report 10667144 (Version 1)
Quarter: 2014Q4

REPORT INFORMATION
  Report Type: Spontaneous
  Country: CN (occurrence: CN)
  Receive Date: 20141222
  Receipt Date: 20141222
  Transmission Date: 20150529
  Serious: Yes (Other)
  Sender: FDA-Public Use
  Company Number: CN-TEVA-530059ISR

PATIENT
  Age: 65 Year
  Sex: Female

DRUGS (7)
  1. AZITHROMYCIN [Suspect]
     Active Substance: AZITHROMYCIN ANHYDROUS
     Indication: PNEUMONIA
     Dosage: .5 GRAM DAILY;
     Route: 042
  2. FUROSEMIDE. [Concomitant]
     Active Substance: FUROSEMIDE
     Route: 065
  3. AROTINOLOL [Concomitant]
     Active Substance: AROTINOLOL
     Route: 065
  4. SPIRONOLACTONE. [Concomitant]
     Active Substance: SPIRONOLACTONE
     Route: 065
  5. SALICYLIC ACID. [Concomitant]
     Active Substance: SALICYLIC ACID
     Route: 065
  6. NIFEDIPINE. [Concomitant]
     Active Substance: NIFEDIPINE
     Route: 065
  7. ATORVASTATIN [Concomitant]
     Active Substance: ATORVASTATIN
     Route: 065

REACTIONS (4)
  - Electrocardiogram QT prolonged [Recovering/Resolving]
  - Electrocardiogram T wave inversion [Recovered/Resolved]
  - Chest discomfort [Unknown]
  - Dyspnoea [Unknown]
